FAERS Safety Report 4881058-2 (Version None)
Quarter: 2005Q4

REPORT INFORMATION
  Report Type: 
  Country: None (occurrence: None)
  Receive Date: 20051223
  Receipt Date: 20050928
  Transmission Date: 20060501
  Serious: No
  Sender: FDA-Public Use
  Company Number: 05P-163-0312170-00

PATIENT
  Age: 39 Year
  Sex: Female
  Weight: 100 kg

DRUGS (10)
  1. HUMIRA [Suspect]
     Indication: RHEUMATOID ARTHRITIS
     Dosage: 40 MG, 1 IN 2 WK, SUBCUTANEOUS;  40 MG, 1 IN 1 WK, SUBCUTANEOUS
     Route: 058
     Dates: start: 20040901, end: 20050801
  2. HUMIRA [Suspect]
     Indication: RHEUMATOID ARTHRITIS
     Dosage: 40 MG, 1 IN 2 WK, SUBCUTANEOUS;  40 MG, 1 IN 1 WK, SUBCUTANEOUS
     Route: 058
     Dates: start: 20050801, end: 20050909
  3. METHOTREXATE [Concomitant]
  4. VICODIN [Concomitant]
  5. LEXAPRO [Concomitant]
  6. ALPRAZOLAM [Concomitant]
  7. CLONAZEPAM [Concomitant]
  8. TIZANIDINE HCL [Concomitant]
  9. LEKOVIT CA [Concomitant]
  10. FOLIC ACID [Concomitant]

REACTIONS (3)
  - FATIGUE [None]
  - PAIN [None]
  - WEIGHT INCREASED [None]
